FAERS Safety Report 5962125-9 (Version None)
Quarter: 2008Q4

REPORT INFORMATION
  Report Type: 
  Country: None (occurrence: None)
  Receive Date: 20081121
  Receipt Date: 20081111
  Transmission Date: 20090506
  Serious: Yes (Other)
  Sender: FDA-Public Use
  Company Number: US-JNJCH-2008053238

PATIENT
  Sex: Male

DRUGS (1)
  1. LUDENS THROAT DROPS WILD CHERRY [Suspect]
     Indication: OROPHARYNGEAL PAIN
     Dosage: TEXT:ONE THROAT DROP TWICE A DAY
     Route: 048
     Dates: start: 20081022, end: 20081028

REACTIONS (3)
  - PRODUCT QUALITY ISSUE [None]
  - TOOTH FRACTURE [None]
  - WRONG TECHNIQUE IN DRUG USAGE PROCESS [None]
